FAERS Safety Report 18902321 (Version 1)
Quarter: 2021Q1

REPORT INFORMATION
  Report Type: Spontaneous
  Country: GB (occurrence: FR)
  Receive Date: 20210217
  Receipt Date: 20210217
  Transmission Date: 20210420
  Serious: Yes (Other)
  Sender: FDA-Public Use
  Company Number: GB-CELLTRION INC.-2021FR001495

PATIENT

DRUGS (6)
  1. RITUXIMAB (UNKNOWN) [Suspect]
     Active Substance: RITUXIMAB
     Indication: DEMYELINATION
     Dosage: UNK
     Route: 065
  2. PREDNISOLONE NOS [Suspect]
     Active Substance: PREDNISOLONE
     Indication: OFF LABEL USE
     Dosage: UNK
  3. AZATHIOPRIN [Suspect]
     Active Substance: AZATHIOPRINE
     Indication: DEMYELINATION
     Dosage: UNK
     Route: 065
  4. RITUXIMAB (UNKNOWN) [Suspect]
     Active Substance: RITUXIMAB
     Indication: OFF LABEL USE
     Dosage: UNK
  5. AZATHIOPRIN [Suspect]
     Active Substance: AZATHIOPRINE
     Indication: OFF LABEL USE
     Dosage: UNK
  6. PREDNISOLONE NOS [Suspect]
     Active Substance: PREDNISOLONE
     Indication: DEMYELINATION
     Dosage: UNK
     Route: 065

REACTIONS (3)
  - Off label use [Unknown]
  - Encephalitis [Unknown]
  - Intentional product use issue [Unknown]
